FAERS Safety Report 15352194 (Version 1)
Quarter: 2018Q3

REPORT INFORMATION
  Report Type: Spontaneous
  Country: CA (occurrence: CA)
  Receive Date: 20180905
  Receipt Date: 20180905
  Transmission Date: 20181010
  Serious: Yes (Hospitalization)
  Sender: FDA-Public Use
  Company Number: CA-PFIZER INC-2018222618

PATIENT
  Age: 74 Year
  Sex: Female
  Weight: 138 kg

DRUGS (21)
  1. SULCRATE [Concomitant]
     Active Substance: SUCRALFATE
     Dosage: 1 G, 3X/DAY
     Route: 048
  2. METOPROLOL. [Concomitant]
     Active Substance: METOPROLOL
     Dosage: 25MG,(1/2 PILL AT BREAKFAST AND 1/2 PILL AT SUPPER)
  3. FLORASTOR [Concomitant]
     Active Substance: SACCHAROMYCES CEREVISIAE
     Dosage: UNK UNK, 1X/DAY (WHEN ON ANTIBIOTICS 2X/DAY)
     Route: 048
  4. TRAVATAN Z [Concomitant]
     Active Substance: TRAVOPROST
     Dosage: 1 DF, 1X/DAY (1 DROP EACH EYE) AT NIGHT
     Route: 047
  5. LIPOSIC [Concomitant]
     Active Substance: CARBOMER
     Dosage: 2 GTT EACH EYE, 3X/DAY
     Route: 047
  6. SEPTRA [Concomitant]
     Active Substance: SULFAMETHOXAZOLE\TRIMETHOPRIM
     Dosage: UNK UNK, CYCLIC (7 DAYS COURSE)
  7. LETROZOLE. [Concomitant]
     Active Substance: LETROZOLE
     Dosage: 2.5 MG, DAILY
     Route: 048
  8. RAMIPRIL. [Concomitant]
     Active Substance: RAMIPRIL
     Dosage: 5 MG, 1X/DAY
     Route: 048
  9. PANTOPRAZOLE [Concomitant]
     Active Substance: PANTOPRAZOLE
     Dosage: 40 MG, UNK
  10. SYMBICORT [Concomitant]
     Active Substance: BUDESONIDE\FORMOTEROL FUMARATE DIHYDRATE
     Dosage: 2 DF (PUFF) DAILY, IF NEEDED
  11. IBRANCE [Suspect]
     Active Substance: PALBOCICLIB
     Indication: BREAST CANCER METASTATIC
     Dosage: 125 MG, DAILY
     Dates: start: 20180606, end: 2018
  12. IBUPROFEN. [Concomitant]
     Active Substance: IBUPROFEN
     Dosage: 400 MG, AS NEEDED
  13. OXYCODONE HYDROCHLORIDE. [Concomitant]
     Active Substance: OXYCODONE HYDROCHLORIDE
     Dosage: 5 MG (4 PER DAY), 4X/DAY (IF NEEDED)
  14. VENTOLIN [Concomitant]
     Active Substance: ALBUTEROL SULFATE
     Dosage: 4 DF(PUFF) DAILY, IF NEEDED
  15. METFORMIN [Concomitant]
     Active Substance: METFORMIN HYDROCHLORIDE
     Dosage: 500 MG, 2X/DAY (AT BREAKFAST AND  SUPPER)
     Route: 048
  16. IBRANCE [Suspect]
     Active Substance: PALBOCICLIB
     Dosage: 75 MG, CYCLIC (DAILY FOR 21 DAYS FOLLOWED BY 7 DAYS OFF )
     Route: 048
     Dates: start: 2018
  17. XARELTO [Concomitant]
     Active Substance: RIVAROXABAN
     Dosage: 20 MG, 1X/DAY (WITH SUPPER)
     Route: 048
  18. CLOTRIMADERM [Concomitant]
     Dosage: UNK UNK, AS NEEDED
  19. VITAMIN D [Concomitant]
     Active Substance: CHOLECALCIFEROL
     Dosage: 2000 IU (2 TABLETS), 2X/DAY
  20. HUMALOG MIX75/25 [Concomitant]
     Active Substance: INSULIN LISPRO
     Dosage: 20 IU, 2X/DAY (20 UNITS AT BREAKFAST, 20 UNITS AT SUPPER)
  21. FML [Concomitant]
     Active Substance: FLUOROMETHOLONE
     Dosage: 1 GTT RIGHT EYE, 2X/DAY
     Route: 047

REACTIONS (5)
  - Large intestinal obstruction [Unknown]
  - Limb discomfort [Not Recovered/Not Resolved]
  - Feeling abnormal [Not Recovered/Not Resolved]
  - Fatigue [Not Recovered/Not Resolved]
  - Nausea [Not Recovered/Not Resolved]

NARRATIVE: CASE EVENT DATE: 2018
